FAERS Safety Report 15112314 (Version 1)
Quarter: 2018Q3

REPORT INFORMATION
  Report Type: Spontaneous
  Country: US (occurrence: US)
  Receive Date: 20180705
  Receipt Date: 20180705
  Transmission Date: 20181010
  Serious: No
  Sender: FDA-Public Use
  Company Number: US-AMAG PHARMACEUTICALS, INC.-AMAG201802418

PATIENT
  Age: 68 Year
  Sex: Female
  Weight: 97.97 kg

DRUGS (2)
  1. FERAHEME [Suspect]
     Active Substance: FERUMOXYTOL NON-STOICHIOMETRIC MAGNETITE
     Indication: IRON DEFICIENCY ANAEMIA
     Dosage: UNK
     Route: 041
     Dates: start: 20180425, end: 20180425
  2. EPIPEN [Concomitant]
     Active Substance: EPINEPHRINE
     Indication: MULTIPLE ALLERGIES
     Route: 065

REACTIONS (9)
  - Throat irritation [Recovered/Resolved]
  - Bone pain [Unknown]
  - Gait disturbance [Unknown]
  - Lip swelling [Recovered/Resolved]
  - Dizziness [Unknown]
  - Sneezing [Recovered/Resolved]
  - Hypoaesthesia oral [Recovered/Resolved]
  - Musculoskeletal pain [Unknown]
  - Cough [Recovered/Resolved]

NARRATIVE: CASE EVENT DATE: 20180425
